FAERS Safety Report 5739723-0 (Version None)
Quarter: 2008Q2

REPORT INFORMATION
  Report Type: 
  Country: None (occurrence: None)
  Receive Date: 20080512
  Receipt Date: 20080512
  Transmission Date: 20081010
  Serious: Yes (Hospitalization)
  Sender: FDA-Public Use
  Company Number: None

PATIENT
  Age: 86 Year
  Sex: Female

DRUGS (3)
  1. WARFARIN SODIUM [Suspect]
     Indication: ANTICOAGULANT THERAPY
     Dosage: 2MG DAILY PO
     Route: 048
  2. LEVOFLOXACIN [Suspect]
     Indication: URINARY TRACT INFECTION
  3. FLUCONAZOLE [Suspect]
     Indication: FUNGAL INFECTION

REACTIONS (6)
  - CONTUSION [None]
  - FLUID INTAKE REDUCED [None]
  - INTERNATIONAL NORMALISED RATIO INCREASED [None]
  - MOUTH HAEMORRHAGE [None]
  - ORAL INTAKE REDUCED [None]
  - URINARY TRACT INFECTION [None]
